FAERS Safety Report 5336032-9 (Version None)
Quarter: 2007Q1

REPORT INFORMATION
  Report Type: 
  Country: None (occurrence: None)
  Receive Date: 20070302
  Receipt Date: 20061113
  Transmission Date: 20070707
  Serious: No
  Sender: FDA-Public Use
  Company Number: 2006MP001212

PATIENT
  Age: 80 Year
  Sex: Male

DRUGS (6)
  1. DACOGEN [Suspect]
     Indication: MYELODYSPLASTIC SYNDROME
     Dosage: QD
     Dates: start: 20061030, end: 20061103
  2. ZOFRAN [Concomitant]
  3. DECADRON [Concomitant]
  4. PROCRIT [Concomitant]
  5. THALIDOMID [Concomitant]
  6. VIDAZA [Concomitant]

REACTIONS (8)
  - ARTHRALGIA [None]
  - GINGIVAL PAIN [None]
  - HAEMOGLOBIN DECREASED [None]
  - OFF LABEL USE [None]
  - PAIN IN JAW [None]
  - PLATELET COUNT DECREASED [None]
  - TOOTHACHE [None]
  - WHITE BLOOD CELL COUNT DECREASED [None]
